FAERS Safety Report 4521187-6 (Version None)
Quarter: 2004Q4

REPORT INFORMATION
  Report Type: 
  Country: None (occurrence: None)
  Receive Date: 20041206
  Receipt Date: 20041119
  Transmission Date: 20050328
  Serious: Yes (Other)
  Sender: FDA-Public Use
  Company Number: 2004-BP-12202RO

PATIENT
  Age: 36 Year
  Sex: Female

DRUGS (10)
  1. METHADONE HCL [Suspect]
     Indication: DRUG WITHDRAWAL MAINTENANCE THERAPY
     Dosage: 180 MG , PO
     Route: 048
  2. CHLORPROTHIXENE (CHLORPROTHIXENE) [Suspect]
     Dosage: 15 MG
  3. EFAVIRENZ (EFAVIRENZ) [Suspect]
     Dosage: 600 MG
  4. FLUCONAZOLE [Suspect]
  5. MIANSERINE [Suspect]
     Dosage: 30 MG
  6. RITONAVIR [Suspect]
     Dosage: 264 MG
  7. FLUNITRAZEPAM (FLUNITRAZEPAM) [Concomitant]
  8. LOPINAVIR [Concomitant]
  9. OXAZEPAM [Concomitant]
  10. ZIDOVUDINE [Concomitant]

REACTIONS (8)
  - DIZZINESS [None]
  - DRUG INTERACTION [None]
  - ELECTROCARDIOGRAM QT CORRECTED INTERVAL PROLONGED [None]
  - ELECTROCARDIOGRAM QT PROLONGED [None]
  - EXTRASYSTOLES [None]
  - INFECTION [None]
  - TORSADE DE POINTES [None]
  - VENTRICULAR TACHYCARDIA [None]
